FAERS Safety Report 13982991 (Version 1)
Quarter: 2017Q3

REPORT INFORMATION
  Report Type: Spontaneous
  Country: US (occurrence: US)
  Receive Date: 20170918
  Receipt Date: 20170918
  Transmission Date: 20171128
  Serious: Yes (Hospitalization)
  Sender: FDA-Public Use
  Company Number: None

PATIENT
  Age: 57 Year
  Sex: Male

DRUGS (1)
  1. SUBOXONE [Suspect]
     Active Substance: BUPRENORPHINE HYDROCHLORIDE\NALOXONE HYDROCHLORIDE
     Dosage: ?          OTHER FREQUENCY:UNKNOWN;?
     Route: 060
     Dates: start: 20170915, end: 20170916

REACTIONS (1)
  - Drug dispensed to wrong patient [None]

NARRATIVE: CASE EVENT DATE: 20170916
